FAERS Safety Report 16625761 (Version 1)
Quarter: 2020Q3

REPORT INFORMATION
  Report Type: Spontaneous
  Country: US (occurrence: US)
  Receive Date: 20190724
  Receipt Date: 20190724
  Transmission Date: 20201105
  Serious: Yes (Other)
  Sender: FDA-Public Use
  Company Number: None

PATIENT
  Age: 30 Year
  Sex: Male

DRUGS (2)
  1. HYOSCYAMINE. [Suspect]
     Active Substance: HYOSCYAMINE
     Indication: MAGNETIC RESONANCE IMAGING
     Dosage: ?          OTHER FREQUENCY:ONCE;?
     Route: 048
     Dates: start: 20190711, end: 20190711
  2. OMEPRAZOLE 20 MG [Concomitant]
     Active Substance: OMEPRAZOLE

REACTIONS (3)
  - Hypoaesthesia [None]
  - Muscle twitching [None]
  - Tremor [None]

NARRATIVE: CASE EVENT DATE: 20190711
